FAERS Safety Report 6211297-X (Version None)
Quarter: 2009Q2

REPORT INFORMATION
  Report Type: 
  Country: None (occurrence: None)
  Receive Date: 20090528
  Receipt Date: 20090523
  Transmission Date: 20091009
  Serious: Yes (Death, Hospitalization, Other)
  Sender: FDA-Public Use
  Company Number: POMP-1000494

PATIENT
  Age: 49 Year
  Sex: Female

DRUGS (3)
  1. MYOZYME [Suspect]
     Indication: GLYCOGEN STORAGE DISEASE TYPE II
     Dosage: 40 MG/KG, Q2W, INTRAVENOUS; 20 MG/KG,Q2W, INTRAVENOUS
     Route: 042
     Dates: start: 20061030, end: 20081111
  2. MYOZYME [Suspect]
     Indication: GLYCOGEN STORAGE DISEASE TYPE II
     Dosage: 40 MG/KG, Q2W, INTRAVENOUS; 20 MG/KG,Q2W, INTRAVENOUS
     Route: 042
     Dates: start: 20081125, end: 20090120
  3. MYOZYME [Suspect]

REACTIONS (12)
  - ASCITES [None]
  - BRONCHOPNEUMONIA [None]
  - HEPATIC ATROPHY [None]
  - HEPATIC STEATOSIS [None]
  - HEPATOSPLENOMEGALY [None]
  - LUNG INFECTION PSEUDOMONAL [None]
  - PERICARDIAL FIBROSIS [None]
  - RENAL TUBULAR NECROSIS [None]
  - RESPIRATORY FAILURE [None]
  - SEPTIC SHOCK [None]
  - STAPHYLOCOCCAL INFECTION [None]
  - THYROID CANCER [None]
